FAERS Safety Report 25397681 (Version 2)
Quarter: 2025Q3

REPORT INFORMATION
  Report Type: Report from Study
  Country: EU (occurrence: EU)
  Receive Date: 20250604
  Receipt Date: 20250807
  Transmission Date: 20251020
  Serious: Yes (Hospitalization)
  Sender: PFIZER
  Company Number: EU-ROCHE-10000293344

PATIENT
  Age: 71 Year
  Sex: Male

DRUGS (4)
  1. ZIRABEV [Suspect]
     Active Substance: BEVACIZUMAB-BVZR
     Indication: Hepatocellular carcinoma
     Route: 065
     Dates: start: 20250313
  2. ZIRABEV [Suspect]
     Active Substance: BEVACIZUMAB-BVZR
     Route: 065
     Dates: start: 20250424
  3. ATEZOLIZUMAB [Suspect]
     Active Substance: ATEZOLIZUMAB
     Indication: Hepatocellular carcinoma
     Route: 065
     Dates: start: 20250313
  4. ATEZOLIZUMAB [Suspect]
     Active Substance: ATEZOLIZUMAB
     Route: 065
     Dates: start: 20250424

REACTIONS (3)
  - Vertigo [Unknown]
  - Cognitive disorder [Unknown]
  - Furuncle [Unknown]

NARRATIVE: CASE EVENT DATE: 20250514
